FAERS Safety Report 5452906-2 (Version None)
Quarter: 2007Q3

REPORT INFORMATION
  Report Type: 
  Country: None (occurrence: None)
  Receive Date: 20070914
  Receipt Date: 20070913
  Transmission Date: 20080115
  Serious: Yes (Other)
  Sender: FDA-Public Use
  Company Number: B0484929A

PATIENT
  Age: 36 Year
  Sex: Female
  Weight: 56 kg

DRUGS (10)
  1. PAXIL [Suspect]
     Indication: DEPRESSION
     Route: 048
  2. LORAZEPAM [Concomitant]
     Indication: ANXIETY
     Dosage: 1.5MG PER DAY
     Route: 048
     Dates: start: 20070529, end: 20070708
  3. LORAZEPAM [Concomitant]
     Indication: ANXIETY
     Route: 048
     Dates: start: 20070713
  4. LENDORMIN [Concomitant]
     Indication: INSOMNIA
     Dosage: .25MG PER DAY
     Route: 048
     Dates: start: 20070528
  5. SULPIRIDE [Concomitant]
     Indication: DEPRESSION
     Dosage: 100MG PER DAY
     Route: 048
     Dates: start: 20070604, end: 20070708
  6. MIRADOL [Concomitant]
     Indication: DEPRESSION
     Dosage: 100MG PER DAY
     Route: 048
     Dates: start: 20070713
  7. DEPAS [Concomitant]
     Indication: INSOMNIA
     Dosage: 1MG PER DAY
     Route: 048
     Dates: start: 20070604
  8. GASMOTIN [Concomitant]
     Indication: ANOREXIA
     Dosage: 15MG PER DAY
     Route: 048
     Dates: start: 20070604
  9. ROHYPNOL [Concomitant]
     Indication: INSOMNIA
     Dosage: 2MG PER DAY
     Route: 048
     Dates: start: 20070713
  10. HIRNAMIN [Concomitant]
     Indication: INSOMNIA
     Dosage: 15MG PER DAY
     Route: 048
     Dates: start: 20070713

REACTIONS (7)
  - DISTURBANCE IN ATTENTION [None]
  - DIZZINESS [None]
  - DRUG WITHDRAWAL SYNDROME [None]
  - FEELING ABNORMAL [None]
  - HYPOAESTHESIA [None]
  - MOOD ALTERED [None]
  - SELF-INJURIOUS IDEATION [None]
